FAERS Safety Report 18512738 (Version 1)
Quarter: 2020Q4

REPORT INFORMATION
  Report Type: Spontaneous
  Country: US (occurrence: US)
  Receive Date: 20201117
  Receipt Date: 20201117
  Transmission Date: 20210114
  Serious: Yes (Other)
  Sender: FDA-Public Use
  Company Number: US-ASTRAZENECA-2020SF50233

PATIENT
  Sex: Male

DRUGS (5)
  1. NEXIUM [Suspect]
     Active Substance: ESOMEPRAZOLE MAGNESIUM
     Indication: IMMUNE SYSTEM DISORDER
     Dosage: DAILY
     Route: 048
  2. NEXIUM [Suspect]
     Active Substance: ESOMEPRAZOLE MAGNESIUM
     Indication: OROPHARYNGEAL DISCOMFORT
     Dosage: DAILY
     Route: 048
  3. NEXIUM 24HR [Suspect]
     Active Substance: ESOMEPRAZOLE MAGNESIUM
     Indication: IMMUNE SYSTEM DISORDER
     Route: 048
  4. NEXIUM 24HR [Suspect]
     Active Substance: ESOMEPRAZOLE MAGNESIUM
     Indication: OROPHARYNGEAL DISCOMFORT
     Route: 048
  5. PHENOBARBITAL. [Concomitant]
     Active Substance: PHENOBARBITAL
     Indication: SEIZURE

REACTIONS (8)
  - Blood phosphorus increased [Unknown]
  - Bowel movement irregularity [Unknown]
  - Drug ineffective [Unknown]
  - Off label use [Unknown]
  - Scleroderma [Unknown]
  - Seizure [Unknown]
  - Retching [Unknown]
  - Vomiting [Unknown]
